FAERS Safety Report 17723551 (Version 1)
Quarter: 2020Q2

REPORT INFORMATION
  Report Type: Spontaneous
  Country: US (occurrence: US)
  Receive Date: 20200429
  Receipt Date: 20200429
  Transmission Date: 20200714
  Serious: Yes (Hospitalization)
  Sender: FDA-Public Use
  Company Number: None

PATIENT
  Sex: Male
  Weight: 73 kg

DRUGS (3)
  1. LENALIDOMIDE (CC-5013) [Suspect]
     Active Substance: LENALIDOMIDE
  2. DEXAMETHASONE. [Suspect]
     Active Substance: DEXAMETHASONE
  3. BORTEZOMIB. [Suspect]
     Active Substance: BORTEZOMIB

REACTIONS (2)
  - Loss of consciousness [None]
  - Drooling [None]

NARRATIVE: CASE EVENT DATE: 20180416
